FAERS Safety Report 16055056 (Version 1)
Quarter: 2019Q1

REPORT INFORMATION
  Report Type: Report from Study
  Country: US (occurrence: US)
  Receive Date: 20190310
  Receipt Date: 20190310
  Transmission Date: 20190418
  Serious: Yes (Hospitalization, Other)
  Sender: FDA-Public Use
  Company Number: US-BRISTOL-MYERS SQUIBB COMPANY-BMS-2019-023439

PATIENT
  Age: 67 Year
  Sex: Male
  Weight: 96.7 kg

DRUGS (3)
  1. IPILIMUMAB [Suspect]
     Active Substance: IPILIMUMAB
     Indication: PRODUCT USED FOR UNKNOWN INDICATION
     Dosage: 1 MG/KG, Q6WK
     Route: 042
     Dates: start: 20180524, end: 20181220
  2. IPILIMUMAB [Suspect]
     Active Substance: IPILIMUMAB
     Indication: SALIVARY GLAND CANCER
     Dosage: 1 MG/KG, Q6WK
     Route: 042
     Dates: start: 20180205
  3. NIVOLUMAB [Suspect]
     Active Substance: NIVOLUMAB
     Indication: SALIVARY GLAND CANCER
     Dosage: 3 MG/KG, Q2WK
     Route: 042
     Dates: start: 20180524, end: 20190122

REACTIONS (1)
  - Acetabulum fracture [Unknown]

NARRATIVE: CASE EVENT DATE: 20190228
